FAERS Safety Report 9438798 (Version 2)
Quarter: 2013Q3

REPORT INFORMATION
  Report Type: Spontaneous
  Country: GB (occurrence: GB)
  Receive Date: 20130802
  Receipt Date: 20130812
  Transmission Date: 20140515
  Serious: Yes (Other)
  Sender: FDA-Public Use
  Company Number: GB-ASTRAZENECA-2013SE59560

PATIENT
  Age: 40 Year
  Sex: Female

DRUGS (3)
  1. SEROQUEL IR [Suspect]
     Indication: BIPOLAR DISORDER
     Route: 048
  2. SEROQUEL IR [Suspect]
     Indication: BIPOLAR DISORDER
     Route: 048
  3. SEROQUEL IR [Suspect]
     Indication: BIPOLAR DISORDER
     Route: 048

REACTIONS (5)
  - Eye pain [Unknown]
  - Ocular hyperaemia [Unknown]
  - Hypersomnia [Not Recovered/Not Resolved]
  - Memory impairment [Unknown]
  - Fatigue [Unknown]
